FAERS Safety Report 5468625-2 (Version None)
Quarter: 2007Q3

REPORT INFORMATION
  Report Type: 
  Country: None (occurrence: None)
  Receive Date: 20070921
  Receipt Date: 20070914
  Transmission Date: 20080115
  Serious: Yes (Death, Hospitalization)
  Sender: FDA-Public Use
  Company Number: 2007-03094

PATIENT
  Age: 62 Year
  Sex: Male

DRUGS (2)
  1. VELCADE [Suspect]
     Indication: MULTIPLE MYELOMA
     Dosage: 1.30 MG/M2,
  2. CORTICOSTEROIDS [Concomitant]

REACTIONS (12)
  - BETA-N-ACETYL-D-GLUCOSAMINIDASE INCREASED [None]
  - DIALYSIS [None]
  - GAMMA-GLUTAMYLTRANSFERASE INCREASED [None]
  - GENERAL PHYSICAL HEALTH DETERIORATION [None]
  - HYPERKALAEMIA [None]
  - HYPOCALCAEMIA [None]
  - HYPOPHOSPHATAEMIA [None]
  - PROSTRATION [None]
  - RENAL FAILURE ACUTE [None]
  - RENAL TUBULAR DISORDER [None]
  - TACHYCARDIA PAROXYSMAL [None]
  - URINE ALANINE AMINOPEPTIDASE INCREASED [None]
